FAERS Safety Report 9374573 (Version 1)
Quarter: 2013Q2

REPORT INFORMATION
  Report Type: Report from Study
  Country: US (occurrence: US)
  Receive Date: 20130628
  Receipt Date: 20130628
  Transmission Date: 20140414
  Serious: Yes (Hospitalization, Other)
  Sender: FDA-Public Use
  Company Number: US-JNJFOC-20130611285

PATIENT
  Sex: Female
  Weight: 82.56 kg

DRUGS (2)
  1. REMICADE [Suspect]
     Indication: RHEUMATOID ARTHRITIS
     Dosage: ONCE EVERY 6 OR 8 WEEKS; 7 TO 8 YEARS PRIOR TO THE DATE OF REPORT
     Route: 042
  2. REMICADE [Suspect]
     Indication: RHEUMATOID ARTHRITIS
     Dosage: ONCE EVERY 6 OR 8 WEEKS; FEW YEARS PRIOR TO THE DATE OF REPORT
     Route: 042

REACTIONS (5)
  - Bunion [Recovered/Resolved]
  - Localised infection [Recovered/Resolved]
  - Hyperkeratosis [Recovered/Resolved]
  - Limb injury [Recovered/Resolved]
  - Localised infection [Recovered/Resolved]
